FAERS Safety Report 6507268-6 (Version None)
Quarter: 2009Q4

REPORT INFORMATION
  Report Type: 
  Country: None (occurrence: None)
  Receive Date: 20091221
  Receipt Date: 20091215
  Transmission Date: 20100525
  Serious: Yes (Death)
  Sender: FDA-Public Use
  Company Number: JP-ELI_LILLY_AND_COMPANY-JP200912004331

PATIENT
  Sex: Male
  Weight: 68 kg

DRUGS (2)
  1. PRASUGREL HYDROCHLORIDE [Suspect]
     Indication: CORONARY ARTERY DISEASE
     Dosage: 20 MG, DAILY (1/D)
     Route: 048
     Dates: start: 20091029, end: 20091029
  2. PRASUGREL HYDROCHLORIDE [Suspect]
     Dosage: 3.75 MG, DAILY (1/D)
     Route: 048
     Dates: start: 20091030

REACTIONS (1)
  - CARDIO-RESPIRATORY ARREST [None]
